FAERS Safety Report 8610649-8 (Version None)
Quarter: 2012Q3

REPORT INFORMATION
  Report Type: 
  Country: None (occurrence: None)
  Receive Date: 20120808
  Receipt Date: 20120731
  Transmission Date: 20120928
  Serious: Yes (Death, Life-Threatening, Hospitalization)
  Sender: FDA-Public Use
  Company Number: 137257

PATIENT
  Age: 54 Year
  Sex: Male
  Weight: 65 kg

DRUGS (1)
  1. ETOPOSIDE [Suspect]
     Indication: NON-SMALL CELL LUNG CANCER STAGE III
     Dosage: 50MG/M2 IV
     Route: 042
     Dates: start: 20120604, end: 20120608

REACTIONS (18)
  - SEPSIS [None]
  - HYPOVOLAEMIC SHOCK [None]
  - RENAL FAILURE ACUTE [None]
  - HAEMODIALYSIS [None]
  - PULMONARY MASS [None]
  - HYPONATRAEMIA [None]
  - PROCALCITONIN INCREASED [None]
  - BRADYCARDIA [None]
  - FEBRILE NEUTROPENIA [None]
  - CARDIAC ARREST [None]
  - RESPIRATORY DISTRESS [None]
  - PERICARDIAL EFFUSION [None]
  - JUGULAR VEIN DISTENSION [None]
  - PNEUMONIA [None]
  - PSEUDOMONAS INFECTION [None]
  - LUNG CONSOLIDATION [None]
  - TRACHEAL HAEMORRHAGE [None]
  - HAEMORRHAGE [None]
